FAERS Safety Report 6343585-0 (Version None)
Quarter: 2009Q3

REPORT INFORMATION
  Report Type: 
  Country: None (occurrence: None)
  Receive Date: 20090908
  Receipt Date: 20090825
  Transmission Date: 20100115
  Serious: Yes (Other)
  Sender: FDA-Public Use
  Company Number: US-PFIZER INC-2009226047

PATIENT
  Sex: Male

DRUGS (2)
  1. CELEBREX [Suspect]
     Indication: ARTHRITIS
     Dosage: 200 MG, UNK
     Dates: start: 20010101
  2. NIFEDIPINE [Concomitant]
     Dosage: UNK
     Dates: start: 19900101

REACTIONS (3)
  - CONTUSION [None]
  - HYPERLIPIDAEMIA [None]
  - HYPERTENSION [None]
